FAERS Safety Report 10091845 (Version 2)
Quarter: 2014Q2

REPORT INFORMATION
  Report Type: Spontaneous
  Country: US (occurrence: US)
  Receive Date: 20140421
  Receipt Date: 20140421
  Transmission Date: 20141212
  Serious: No
  Sender: FDA-Public Use
  Company Number: US-GILEAD-2012-0064521

PATIENT
  Sex: Male
  Weight: 113.38 kg

DRUGS (10)
  1. LETAIRIS [Suspect]
     Indication: PULMONARY ARTERIAL HYPERTENSION
     Dosage: 5 MG, UNK
     Route: 048
     Dates: start: 20120921, end: 201209
  2. ATORVASTATIN [Concomitant]
     Dosage: 10 MG, UNK
     Route: 048
  3. EFFIENT [Concomitant]
     Dosage: 10 MG, UNK
     Route: 048
  4. LABETALOL [Concomitant]
  5. LASIX [Concomitant]
     Dosage: 40 MG, UNK
     Route: 048
  6. LOSARTAN [Concomitant]
     Dosage: 50 MG, UNK
     Route: 048
  7. PANTOPRAZOLE [Concomitant]
     Dosage: 40 MG, UNK
     Route: 048
  8. KCL [Concomitant]
     Dosage: 20 MG, UNK
     Route: 048
  9. PRADAXA [Concomitant]
     Dosage: 150 MG, UNK
     Route: 048
  10. SOTALOL [Concomitant]
     Dosage: 80 MG, UNK
     Route: 048

REACTIONS (4)
  - Feeling abnormal [Unknown]
  - Swelling [Unknown]
  - Dyspnoea [Unknown]
  - Fatigue [Unknown]
